FAERS Safety Report 5302166-8 (Version None)
Quarter: 2007Q2

REPORT INFORMATION
  Report Type: 
  Country: None (occurrence: None)
  Receive Date: 20070413
  Receipt Date: 20070330
  Transmission Date: 20071010
  Serious: Yes (Other)
  Sender: FDA-Public Use
  Company Number: DSA_29642_2007

PATIENT
  Age: 80 Year
  Sex: Male

DRUGS (4)
  1. DILTIAZEM [Suspect]
     Indication: ANGINA PECTORIS
     Dosage: 90 MG QD PO
     Route: 048
     Dates: start: 20060104, end: 20060501
  2. BENDROFLUAZIDE [Concomitant]
  3. LANSOPRAZOLE [Concomitant]
  4. LISINOPRIL [Concomitant]

REACTIONS (2)
  - ABDOMINAL PAIN [None]
  - OEDEMA PERIPHERAL [None]
